FAERS Safety Report 6716402-4 (Version None)
Quarter: 2010Q2

REPORT INFORMATION
  Report Type: 
  Country: None (occurrence: None)
  Receive Date: 20100507
  Receipt Date: 20100507
  Transmission Date: 20101027
  Serious: No
  Sender: FDA-Public Use
  Company Number: None

PATIENT
  Age: 2 Year
  Sex: Male

DRUGS (2)
  1. CONCENTRATED TYLENOL INFANT DROPS [Suspect]
  2. CONCENTRATED MOTRIN INFANTS DROPS [Suspect]

REACTIONS (3)
  - DYSPHEMIA [None]
  - LETHARGY [None]
  - SOMNOLENCE [None]
